FAERS Safety Report 10333138 (Version 1)
Quarter: 2014Q3

REPORT INFORMATION
  Report Type: Spontaneous
  Country: US (occurrence: US)
  Receive Date: 20140722
  Receipt Date: 20140722
  Transmission Date: 20150326
  Serious: No
  Sender: FDA-Public Use
  Company Number: US-SA-2014SA019402

PATIENT
  Age: 76 Year
  Sex: Female
  Weight: 115 kg

DRUGS (5)
  1. AMBIEN CR [Suspect]
     Active Substance: ZOLPIDEM TARTRATE
     Route: 065
     Dates: start: 20140213
  2. ZOLPIDEM TARTRATE EXTENDED RELEASE [Suspect]
     Active Substance: ZOLPIDEM TARTRATE
     Indication: SLEEP DISORDER
     Dosage: TOOK FOR 3 DAYS, THEN SHE STOPPED FOR 2 DAYS, AND RESTARTED.
     Route: 048
  3. LEVO [Concomitant]
     Indication: PRODUCT USED FOR UNKNOWN INDICATION
     Dosage: DOSE - 25/ 100 MG 3 TIMES A DAILY
     Route: 065
  4. ASPIRIN. [Concomitant]
     Active Substance: ASPIRIN
     Indication: PRODUCT USED FOR UNKNOWN INDICATION
     Route: 065
  5. ALENDRONATE [Concomitant]
     Active Substance: ALENDRONATE SODIUM
     Indication: PRODUCT USED FOR UNKNOWN INDICATION
     Route: 065
     Dates: start: 20120113

REACTIONS (3)
  - Drug ineffective [Unknown]
  - Insomnia [Not Recovered/Not Resolved]
  - Dizziness [Unknown]
